FAERS Safety Report 9444901 (Version 1)
Quarter: 2013Q3

REPORT INFORMATION
  Report Type: Spontaneous
  Country: DK (occurrence: SE)
  Receive Date: 20130807
  Receipt Date: 20130807
  Transmission Date: 20140515
  Serious: Yes (Hospitalization)
  Sender: FDA-Public Use
  Company Number: SE-FRI-1000047568

PATIENT
  Age: 75 Year
  Sex: Male

DRUGS (9)
  1. ESCITALOPRAM [Suspect]
     Indication: GENERALISED ANXIETY DISORDER
     Route: 048
     Dates: start: 20100927, end: 20130419
  2. SIMVASTATIN [Concomitant]
  3. ZOLPIDEM [Concomitant]
  4. ENALAPRIL [Concomitant]
  5. DENTAN MOUTH WASH [Concomitant]
  6. TROMBYL [Concomitant]
  7. XANOR [Concomitant]
  8. SELOKEN ZOC [Concomitant]
  9. ATACAND [Concomitant]

REACTIONS (3)
  - Syncope [Unknown]
  - Electrocardiogram QT prolonged [Unknown]
  - Arrhythmia [Unknown]
